FAERS Safety Report 17952905 (Version 1)
Quarter: 2020Q2

REPORT INFORMATION
  Report Type: Spontaneous
  Country: IT (occurrence: IT)
  Receive Date: 20200627
  Receipt Date: 20200627
  Transmission Date: 20200714
  Serious: Yes (Other)
  Sender: FDA-Public Use
  Company Number: IT-ACCORD-187060

PATIENT
  Age: 43 Year
  Sex: Female

DRUGS (2)
  1. FLUOROURACIL. [Suspect]
     Active Substance: FLUOROURACIL
     Indication: ANAL CANCER
     Route: 042
     Dates: start: 20200515, end: 20200515
  2. MITOMYCIN. [Suspect]
     Active Substance: MITOMYCIN
     Indication: ANAL CANCER
     Route: 042
     Dates: start: 20200515, end: 20200515

REACTIONS (1)
  - Neutropenia [Recovered/Resolved]

NARRATIVE: CASE EVENT DATE: 20200605
